FAERS Safety Report 7518517-X (Version None)
Quarter: 2011Q2

REPORT INFORMATION
  Report Type: 
  Country: None (occurrence: None)
  Receive Date: 20110601
  Receipt Date: 20110601
  Transmission Date: 20111010
  Serious: Yes (Hospitalization)
  Sender: FDA-Public Use
  Company Number: None

PATIENT
  Age: 43 Year
  Sex: Male
  Weight: 99.5 kg

DRUGS (2)
  1. SAPHRIS [Suspect]
     Indication: BIPOLAR DISORDER
     Dosage: 5MG BID SL
     Route: 060
     Dates: start: 20110504, end: 20110517
  2. SAPHRIS [Suspect]
     Indication: BIPOLAR DISORDER
     Dosage: 10MG BID SL
     Route: 060
     Dates: start: 20110518, end: 20110526

REACTIONS (5)
  - DIZZINESS [None]
  - MUSCLE SPASMS [None]
  - DEPRESSED MOOD [None]
  - TREMOR [None]
  - RENAL FAILURE ACUTE [None]
